FAERS Safety Report 6144982-9 (Version None)
Quarter: 2009Q2

REPORT INFORMATION
  Report Type: 
  Country: None (occurrence: None)
  Receive Date: 20090406
  Receipt Date: 20090325
  Transmission Date: 20091009
  Serious: Yes (Other)
  Sender: FDA-Public Use
  Company Number: DE-GENENTECH-280207

PATIENT
  Sex: Female

DRUGS (1)
  1. AVASTIN [Suspect]
     Indication: BREAST CANCER METASTATIC
     Dosage: UNK
     Route: 042
     Dates: start: 20080301

REACTIONS (2)
  - CHILLS [None]
  - PYREXIA [None]
